FAERS Safety Report 9384517 (Version 1)
Quarter: 2013Q3

REPORT INFORMATION
  Report Type: Spontaneous
  Country: ZA (occurrence: ZA)
  Receive Date: 20130705
  Receipt Date: 20130705
  Transmission Date: 20140515
  Serious: Yes (Hospitalization, Other)
  Sender: FDA-Public Use
  Company Number: ZA-JNJFOC-20130701126

PATIENT
  Age: 74 Year
  Sex: Female

DRUGS (10)
  1. XARELTO 10 [Suspect]
     Indication: KNEE ARTHROPLASTY
     Route: 048
     Dates: start: 201305
  2. XARELTO 10 [Suspect]
     Indication: THROMBOSIS PROPHYLAXIS
     Route: 048
     Dates: start: 201305
  3. SIMVASTATIN [Concomitant]
     Route: 065
  4. ADCO-RETIC [Concomitant]
     Route: 065
  5. RAMIPRIL [Concomitant]
     Route: 065
  6. PREMARIN [Concomitant]
     Dosage: TWICE WEEKLY
     Route: 065
  7. ENABLEX [Concomitant]
     Route: 065
  8. TETRACYCLINE [Concomitant]
     Route: 065
  9. ENOXAPARIN [Concomitant]
     Indication: THROMBOSIS PROPHYLAXIS
     Route: 065
  10. WARFARIN [Concomitant]
     Route: 065

REACTIONS (6)
  - Pulmonary embolism [Recovering/Resolving]
  - Malaise [Recovering/Resolving]
  - Anxiety [Unknown]
  - Pain [Unknown]
  - Exercise tolerance decreased [Unknown]
  - Blood pressure decreased [Unknown]
